FAERS Safety Report 24560562 (Version 1)
Quarter: 2024Q4

REPORT INFORMATION
  Report Type: Spontaneous
  Country: US (occurrence: None)
  Receive Date: 20241028
  Receipt Date: 20241028
  Transmission Date: 20250115
  Serious: No
  Sender: Public
  Company Number: None

PATIENT
  Age: 66 Year
  Sex: Female
  Weight: 179 kg

DRUGS (2)
  1. CEFAZOLIN SODIUM [Suspect]
     Active Substance: CEFAZOLIN SODIUM
     Indication: Surgery
     Dosage: OTHER FREQUENCY : ONCE;?
     Route: 042
     Dates: start: 20220823, end: 20220823
  2. UNSPECIFIED INGREDIENT [Suspect]
     Active Substance: UNSPECIFIED INGREDIENT

REACTIONS (4)
  - Anaphylactic reaction [None]
  - Dyspnoea [None]
  - Stridor [None]
  - Throat tightness [None]

NARRATIVE: CASE EVENT DATE: 20220823
